FAERS Safety Report 5006290-9 (Version None)
Quarter: 2006Q2

REPORT INFORMATION
  Report Type: 
  Country: None (occurrence: None)
  Receive Date: 20060519
  Receipt Date: 20060511
  Transmission Date: 20061013
  Serious: Yes (Other)
  Sender: FDA-Public Use
  Company Number: PHEH2006US06221

PATIENT
  Age: 45 Year
  Sex: Male

DRUGS (2)
  1. LOPRESSOR [Suspect]
     Dosage: 50 MG, BID
     Route: 048
     Dates: start: 19980101
  2. ANALGESICS [Concomitant]

REACTIONS (7)
  - AMNESIA [None]
  - CONVULSION [None]
  - HEADACHE [None]
  - MENINGIOMA [None]
  - NEOPLASM PROGRESSION [None]
  - RADIOTHERAPY [None]
  - SURGERY [None]
